FAERS Safety Report 24345201 (Version 1)
Quarter: 2024Q3

REPORT INFORMATION
  Report Type: Spontaneous
  Country: GB (occurrence: GB)
  Receive Date: 20240920
  Receipt Date: 20240920
  Transmission Date: 20241017
  Serious: Yes (Other)
  Sender: BAXTER
  Company Number: None

PATIENT
  Age: 78 Year
  Sex: Female

DRUGS (1)
  1. TRANSDERM SCOP [Suspect]
     Active Substance: SCOPOLAMINE
     Dosage: (DOSAGE TEXT: 1.5 MG PATCH CHANGED EVERY 3 DAYS) (PHARMACEUTICAL DOSE FORM: TRANSDERMAL PATCH)
     Route: 065
     Dates: start: 20240805, end: 20240830

REACTIONS (1)
  - Apnoea [Recovered/Resolved]

NARRATIVE: CASE EVENT DATE: 20240830
